FAERS Safety Report 19006632 (Version 1)
Quarter: 2021Q1

REPORT INFORMATION
  Report Type: Spontaneous
  Country: US (occurrence: US)
  Receive Date: 20210315
  Receipt Date: 20210315
  Transmission Date: 20210420
  Serious: Yes (Other)
  Sender: FDA-Public Use
  Company Number: US-JNJFOC-20210315285

PATIENT
  Age: 22 Year
  Sex: Female

DRUGS (4)
  1. RISPERDAL [Interacting]
     Active Substance: RISPERIDONE
     Indication: SEIZURE
     Route: 065
  2. TOPAMAX [Suspect]
     Active Substance: TOPIRAMATE
     Indication: SEIZURE
     Route: 048
  3. KLONOPIN [Interacting]
     Active Substance: CLONAZEPAM
     Indication: SEIZURE
     Route: 065
  4. TRILEPTAL [Interacting]
     Active Substance: OXCARBAZEPINE
     Indication: SEIZURE
     Route: 065

REACTIONS (4)
  - Breast hyperplasia [Recovered/Resolved]
  - Drug interaction [Recovered/Resolved]
  - Product use in unapproved indication [Unknown]
  - Off label use [Unknown]
